FAERS Safety Report 14512829 (Version 1)
Quarter: 2018Q1

REPORT INFORMATION
  Report Type: Spontaneous
  Country: US (occurrence: US)
  Receive Date: 20180209
  Receipt Date: 20180209
  Transmission Date: 20180509
  Serious: No
  Sender: FDA-Public Use
  Company Number: US-ALLERGAN-1709161US

PATIENT
  Sex: Female

DRUGS (6)
  1. THERATEARS [Concomitant]
     Active Substance: CARBOXYMETHYLCELLULOSE SODIUM
     Indication: DRY EYE
     Route: 047
  2. LASIX [Concomitant]
     Active Substance: FUROSEMIDE
     Indication: PERIPHERAL SWELLING
  3. SOOTHE [Concomitant]
     Active Substance: BISMUTH SUBSALICYLATE\GLYCERIN\PROPYLENE GLYCOL
     Indication: DRY EYE
     Route: 047
  4. LASIX [Concomitant]
     Active Substance: FUROSEMIDE
     Indication: EYE SWELLING
  5. RESTASIS [Suspect]
     Active Substance: CYCLOSPORINE
     Indication: DRY EYE
     Dosage: 2 GTT, BID
     Route: 047
  6. RESTASIS [Suspect]
     Active Substance: CYCLOSPORINE
     Dosage: 2 GTT, UNK
     Route: 047
     Dates: start: 20170307, end: 20170308

REACTIONS (4)
  - Ocular discomfort [Unknown]
  - Eye pruritus [Unknown]
  - Lacrimation increased [Unknown]
  - Eye irritation [Unknown]
